FAERS Safety Report 9516502 (Version 1)
Quarter: 2013Q1

REPORT INFORMATION
  Report Type: Spontaneous
  Country: US (occurrence: None)
  Receive Date: 20130305
  Receipt Date: 20130305
  Transmission Date: 20140127
  Serious: Yes (Other)
  Sender: FDA-Public Use
  Company Number: 163-21880-12080607

PATIENT
  Age: 56 Year
  Sex: Male

DRUGS (4)
  1. REVLIMID (LENALIDOMIDE) (CAPSULES) [Suspect]
     Indication: PLASMA CELL MYELOMA
     Dosage: 25 MG, 21 IN 28 D, PO
     Route: 048
     Dates: start: 20120620
  2. OXYCONTIN (OXYCODONE HYDROCHLORIDE) [Concomitant]
  3. COLACE (DOCUSATE SODIUM) [Concomitant]
  4. DEXAMETHASONE (DEXAMETHASONE) [Concomitant]

REACTIONS (6)
  - Libido decreased [None]
  - Hyperhidrosis [None]
  - Diarrhoea [None]
  - Dysgeusia [None]
  - Fatigue [None]
  - Pruritus [None]
